FAERS Safety Report 7203282-6 (Version None)
Quarter: 2010Q4

REPORT INFORMATION
  Report Type: 
  Country: None (occurrence: None)
  Receive Date: 20101230
  Receipt Date: 20101221
  Transmission Date: 20110411
  Serious: No
  Sender: FDA-Public Use
  Company Number: US-BIOGENIDEC-2010BI044910

PATIENT
  Sex: Female

DRUGS (2)
  1. TYSABRI [Suspect]
     Indication: MULTIPLE SCLEROSIS
     Route: 042
     Dates: start: 20080320, end: 20080613
  2. TYSABRI [Suspect]
     Route: 042
     Dates: start: 20090107

REACTIONS (2)
  - HYPOAESTHESIA [None]
  - KNEE OPERATION [None]
